FAERS Safety Report 18118386 (Version 1)
Quarter: 2020Q3

REPORT INFORMATION
  Report Type: Report from Study
  Country: US (occurrence: US)
  Receive Date: 20200806
  Receipt Date: 20200806
  Transmission Date: 20201103
  Serious: Yes (Disabling, Other)
  Sender: FDA-Public Use
  Company Number: US-SA-2015SA149210

PATIENT

DRUGS (8)
  1. RANITIDINE. [Concomitant]
     Active Substance: RANITIDINE
     Dosage: 150 MG, BID
     Route: 065
  2. CLONAZEPAM. [Concomitant]
     Active Substance: CLONAZEPAM
     Dosage: 1 MG, QD
  3. ALEMTUZUMAB [Suspect]
     Active Substance: ALEMTUZUMAB
     Indication: MULTIPLE SCLEROSIS
     Dosage: 12 MG,QD
     Route: 041
     Dates: start: 20150921, end: 20150925
  4. KLOR?CON [Concomitant]
     Active Substance: POTASSIUM CHLORIDE
     Dosage: 20 MG
  5. PHENAZOPYRIDINE. [Concomitant]
     Active Substance: PHENAZOPYRIDINE
     Dosage: 100 MG EVERY 8 HOURS
  6. CRANBERRY + VITAMIN C [ASCORBIC ACID;VACCINIUM MACROCARPON] [Concomitant]
     Route: 065
  7. FLUOXETINE [Concomitant]
     Active Substance: FLUOXETINE HYDROCHLORIDE
     Dosage: 20 MG, TID
     Route: 065
  8. THYROID [Concomitant]
     Active Substance: LEVOTHYROXINE\LIOTHYRONINE
     Dosage: 60 MG, QD

REACTIONS (35)
  - Renal impairment [Unknown]
  - Feeling abnormal [Unknown]
  - Musculoskeletal disorder [Unknown]
  - Rash [Recovering/Resolving]
  - Thermal burn [Unknown]
  - Hypoaesthesia [Recovered/Resolved]
  - Pain in extremity [Unknown]
  - Pallor [Unknown]
  - Pruritus [Not Recovered/Not Resolved]
  - Balance disorder [Not Recovered/Not Resolved]
  - Cognitive disorder [Unknown]
  - Gait disturbance [Unknown]
  - Malaise [Unknown]
  - White blood cell count decreased [Recovered/Resolved]
  - Red blood cell count decreased [Recovered/Resolved]
  - Cushingoid [Recovering/Resolving]
  - Heart rate irregular [Unknown]
  - Weight decreased [Unknown]
  - Bronchitis [Unknown]
  - Mobility decreased [Recovered/Resolved]
  - Paraesthesia [Recovered/Resolved]
  - Blood pressure increased [Unknown]
  - Fatigue [Recovered/Resolved]
  - Blood glucose abnormal [Not Recovered/Not Resolved]
  - Loss of libido [Unknown]
  - Influenza [Unknown]
  - Agitation [Unknown]
  - Feeling abnormal [Unknown]
  - Gastrointestinal disorder [Unknown]
  - Renal pain [Unknown]
  - Feeling cold [Unknown]
  - Cardiac disorder [Unknown]
  - Impaired driving ability [Unknown]
  - Pain [Unknown]
  - Poor quality sleep [Recovered/Resolved]

NARRATIVE: CASE EVENT DATE: 201511
